FAERS Safety Report 6682385-9 (Version None)
Quarter: 2010Q2

REPORT INFORMATION
  Report Type: 
  Country: None (occurrence: None)
  Receive Date: 20100415
  Receipt Date: 20100405
  Transmission Date: 20101027
  Serious: Yes (Other)
  Sender: FDA-Public Use
  Company Number: US-PFIZER INC-2010043671

PATIENT
  Sex: Female
  Weight: 54 kg

DRUGS (10)
  1. NORVASC [Suspect]
     Indication: HYPERTENSION
     Dosage: 5 MG, DAILY
  2. CYMBALTA [Suspect]
     Indication: DIABETIC NEUROPATHY
     Dosage: 30 MG, DAILY
     Route: 048
     Dates: start: 20100209
  3. ACETYLSALICYLIC ACID [Concomitant]
     Dosage: 81 MG, UNK
  4. CRESTOR [Concomitant]
     Dosage: 20 MG, UNK
  5. NEXIUM [Concomitant]
     Dosage: 40 MG, UNK
  6. PLAVIX [Concomitant]
     Dosage: 75 MG, UNK
  7. TOPROL-XL [Concomitant]
     Indication: HYPERTENSION
     Dosage: 100 MG, UNK
  8. XANAX [Concomitant]
     Dosage: 1 MG, UNK
  9. HUMALOG [Concomitant]
     Dosage: UNK
  10. LISINOPRIL [Concomitant]
     Indication: HYPERTENSION
     Dosage: 2.5 MG, DAILY

REACTIONS (11)
  - ANGIOPLASTY [None]
  - BALANCE DISORDER [None]
  - CORONARY ARTERY BYPASS [None]
  - DIABETIC NEUROPATHY [None]
  - DIZZINESS [None]
  - FATIGUE [None]
  - FEELING DRUNK [None]
  - HYPERTENSION [None]
  - MENORRHAGIA [None]
  - MYOCARDIAL INFARCTION [None]
  - NAUSEA [None]
